FAERS Safety Report 8356821-6 (Version None)
Quarter: 2012Q2

REPORT INFORMATION
  Report Type: 
  Country: None (occurrence: None)
  Receive Date: 20120510
  Receipt Date: 20120504
  Transmission Date: 20120825
  Serious: Yes (Hospitalization)
  Sender: FDA-Public Use
  Company Number: A0976334A

PATIENT
  Sex: Female

DRUGS (1)
  1. ASPIRIN + CAFFEINE + PARACETAMOL POWDER (ACETAMINOPHEN + ASPIRIN +) [Suspect]
     Indication: HEADACHE
     Dosage: SIX TIMES PER DAY / ORAL
     Route: 048

REACTIONS (7)
  - DRUG ADMINISTRATION ERROR [None]
  - SCAR [None]
  - PAIN [None]
  - INTESTINAL PERFORATION [None]
  - GASTROINTESTINAL DISORDER [None]
  - ABDOMINAL PAIN UPPER [None]
  - INCISION SITE PAIN [None]
